FAERS Safety Report 15378371 (Version 3)
Quarter: 2018Q3

REPORT INFORMATION
  Report Type: Report from Study
  Country: RU (occurrence: RU)
  Receive Date: 20180913
  Receipt Date: 20180921
  Transmission Date: 20181010
  Serious: Yes (Other)
  Sender: FDA-Public Use
  Company Number: RU-ASTRAZENECA-2018SE89437

PATIENT
  Age: 70 Year
  Sex: Male
  Weight: 100 kg

DRUGS (12)
  1. BRILINTA [Suspect]
     Active Substance: TICAGRELOR
     Indication: MIGRAINOUS INFARCTION
     Route: 048
     Dates: start: 2018
  2. NEXIUM [Concomitant]
     Active Substance: ESOMEPRAZOLE MAGNESIUM
  3. TORASEMIDE [Concomitant]
     Active Substance: TORSEMIDE
  4. CARDIOMAGNYL [Suspect]
     Active Substance: ASPIRIN\MAGNESIUM HYDROXIDE
     Route: 065
  5. AMLODIPINE [Concomitant]
     Active Substance: AMLODIPINE BESYLATE
  6. CONCOR [Concomitant]
     Active Substance: BISOPROLOL FUMARATE
  7. QUAMATEL [Concomitant]
     Active Substance: FAMOTIDINE
  8. REBAMIPIDE [Concomitant]
     Active Substance: REBAMIPIDE
  9. VALZ [Concomitant]
     Active Substance: VALSARTAN
  10. BRILINTA [Suspect]
     Active Substance: TICAGRELOR
     Indication: MIGRAINOUS INFARCTION
     Route: 048
     Dates: start: 201803
  11. ACETYLSALICYLIC ACID [Concomitant]
     Active Substance: ASPIRIN
  12. VEROSPIRON [Concomitant]
     Active Substance: SPIRONOLACTONE

REACTIONS (6)
  - Gastric ulcer [Recovering/Resolving]
  - Gastrointestinal ulcer haemorrhage [Recovered/Resolved]
  - Gastritis erosive [Recovering/Resolving]
  - Off label use [Not Recovered/Not Resolved]
  - Renal cancer [Unknown]
  - Product use issue [Unknown]

NARRATIVE: CASE EVENT DATE: 201806
